FAERS Safety Report 25344279 (Version 2)
Quarter: 2025Q4

REPORT INFORMATION
  Report Type: Report from Study
  Country: US (occurrence: US)
  Receive Date: 20250521
  Receipt Date: 20251006
  Transmission Date: 20260118
  Serious: Yes (Other)
  Sender: AMGEN
  Company Number: US-AMGEN-USASP2025099476

PATIENT
  Sex: Female

DRUGS (1)
  1. TAVNEOS [Suspect]
     Active Substance: AVACOPAN
     Indication: Product used for unknown indication
     Dosage: 30 MILLIGRAM, BID (10 MG CAPSULE (ACTIVE)
     Route: 065

REACTIONS (3)
  - Blood iron decreased [Unknown]
  - Blood potassium decreased [Unknown]
  - Abdominal distension [Unknown]
